FAERS Safety Report 15200618 (Version 3)
Quarter: 2018Q4

REPORT INFORMATION
  Report Type: Report from Study
  Country: None (occurrence: US)
  Receive Date: 20180726
  Receipt Date: 20181028
  Transmission Date: 20190204
  Serious: Yes (Other)
  Sender: FDA-Public Use
  Company Number: US-ABBVIE-18K-163-2429609-00

PATIENT
  Age: 68 Year
  Sex: Male
  Weight: 115.32 kg

DRUGS (1)
  1. HUMIRA [Suspect]
     Active Substance: ADALIMUMAB
     Indication: COLITIS ULCERATIVE
     Route: 058

REACTIONS (6)
  - Decreased appetite [Unknown]
  - Inguinal hernia [Unknown]
  - Inguinal hernia perforation [Unknown]
  - Gastrointestinal oedema [Unknown]
  - Gastrointestinal tract irritation [Unknown]
  - Colitis ulcerative [Recovered/Resolved]

NARRATIVE: CASE EVENT DATE: 2018
